FAERS Safety Report 9351268 (Version 1)
Quarter: 2013Q2

REPORT INFORMATION
  Report Type: Spontaneous
  Country: FR (occurrence: FR)
  Receive Date: 20130617
  Receipt Date: 20130617
  Transmission Date: 20140414
  Serious: Yes (Hospitalization)
  Sender: FDA-Public Use
  Company Number: FR-AMGEN-FRASP2013041872

PATIENT
  Age: 49 Year
  Sex: Male

DRUGS (33)
  1. PEGFILGRASTIM [Suspect]
     Indication: COLONY STIMULATING FACTOR PROPHYLAXIS
     Dosage: 6 MG, CYCLIC
     Route: 058
     Dates: start: 20090515
  2. PEGFILGRASTIM [Suspect]
     Dosage: 6 MG, ONE TIME DOSE
     Route: 058
     Dates: start: 20090716, end: 20090716
  3. RITUXIMAB [Suspect]
     Indication: MANTLE CELL LYMPHOMA
     Dosage: ON DAY 4 OF CYCLE 1 AT 375 MG/M2/DAY = 800 MG/CYCLE
     Route: 042
     Dates: start: 20090514
  4. RITUXIMAB [Suspect]
     Dosage: CYCLE 2, FREQ: DAY 1 (CYCLE 2-4) AT 800 MG/CYCLE
     Route: 042
     Dates: start: 20090610
  5. RITUXIMAB [Suspect]
     Dosage: 800 MG, ONE TIME DOSE
     Route: 042
     Dates: start: 20090710, end: 20090710
  6. RITUXIMAB [Suspect]
     Dosage: AS R-BEAM CONDITIONING REGIMEN (500 MG/M2, 1 IN 1 D)
     Route: 042
     Dates: start: 20090916
  7. EPOETIN BETA [Suspect]
     Indication: MANTLE CELL LYMPHOMA
     Dosage: 30000 IU, CYCLIC
     Route: 058
     Dates: start: 20090517
  8. CYTARABINE [Suspect]
     Indication: MANTLE CELL LYMPHOMA
     Dosage: 4 G, CYCLIC
     Route: 041
     Dates: start: 20090511
  9. CYTARABINE [Suspect]
     Dosage: DAY 1 AND 2 OF EACH CYCLE AT 2 G/M2/DAY (4 G)
     Route: 041
     Dates: start: 20090612
  10. CYTARABINE [Suspect]
     Dosage: AS R-BEAM REGIMEN (800 MG, 1 IN 1 D)
     Route: 041
     Dates: start: 20090712, end: 20090713
  11. CYTARABINE [Suspect]
     Dosage: 4 G, UNK
     Route: 041
     Dates: start: 20090918, end: 20090921
  12. CISPLATIN [Suspect]
     Indication: MANTLE CELL LYMPHOMA
     Dosage: DAY 1 EVERY CYCLE
     Route: 042
     Dates: start: 20090511, end: 20090512
  13. CISPLATIN [Suspect]
     Dosage: CYCLE 2, CYCLE 3 10/JUL/2009 AND CYCLE 4 06/AUG/2009
     Route: 042
     Dates: start: 20090611, end: 20090612
  14. CISPLATIN [Suspect]
     Dosage: 24 HRS IV (200 MG)
     Route: 042
     Dates: start: 20090710, end: 20090711
  15. DEXAMETHASONE [Suspect]
     Indication: MANTLE CELL LYMPHOMA
     Dosage: DAY 1 - 4 EVERY CYCLE
     Route: 065
     Dates: start: 20090511, end: 20090514
  16. DEXAMETHASONE [Suspect]
     Dosage: CYCLE 2 AND 3 ON 10/JUL/2009, CYCLE 4 ON 06/AUG/2009 (VARIABLE 80MG-160MG/CYCLE)
     Route: 065
     Dates: start: 20090610, end: 20090613
  17. DEXAMETHASONE [Suspect]
     Dosage: 40 MG, UNK
     Route: 042
     Dates: start: 20090710, end: 20090712
  18. ALKERAN [Suspect]
     Indication: PRODUCT USED FOR UNKNOWN INDICATION
     Dosage: 280 MG, UNK
     Route: 042
     Dates: start: 20090922
  19. BICNU [Suspect]
     Indication: PRODUCT USED FOR UNKNOWN INDICATION
     Dosage: 600 MG, UNK
     Route: 042
     Dates: start: 20090917
  20. COTAREG [Concomitant]
     Indication: HYPERTENSION
     Dosage: 1 DF, UNK
     Route: 048
     Dates: start: 2008
  21. COTAREG [Concomitant]
     Dosage: 80 MG, UNK
     Route: 048
     Dates: start: 2008
  22. ALLOPURINOL [Concomitant]
     Indication: PROPHYLAXIS
     Dosage: 300 MG, UNK
     Route: 048
     Dates: start: 20090514
  23. PRAVASTATIN                        /00880402/ [Concomitant]
     Indication: HYPERCHOLESTEROLAEMIA
     Dosage: 1 DF, UNK
     Route: 048
     Dates: start: 2008
  24. LEXOMIL [Concomitant]
     Indication: ANXIETY
     Dosage: UNK
     Route: 048
     Dates: start: 20090921
  25. STILNOX [Concomitant]
     Indication: INSOMNIA
     Dosage: 1 DF, UNK
     Route: 048
     Dates: start: 20090921
  26. NICOPATCH [Concomitant]
     Indication: EX-TOBACCO USER
     Dosage: 14 MG, UNK
     Route: 062
     Dates: start: 20090916
  27. LEDERFOLINE [Concomitant]
     Indication: PROPHYLAXIS
     Dosage: 25 MG, 3 IN 1 WK
     Route: 048
     Dates: start: 20091112
  28. ZELITREX [Concomitant]
     Indication: PROPHYLAXIS
     Dosage: 500 MG, UNK
     Route: 048
     Dates: start: 20091119
  29. GAMMA                              /07494701/ [Concomitant]
     Indication: HYPOGAMMAGLOBULINAEMIA
     Dosage: 3.3 G, 1 IN 1 WK
     Route: 058
     Dates: start: 20091119
  30. BACTRIM [Concomitant]
     Indication: ANTIFUNGAL PROPHYLAXIS
     Dosage: UNK
  31. TAREG [Concomitant]
     Indication: HYPERTENSION
     Dosage: 80 MG, UNK
     Dates: start: 2008
  32. DUPHALAC                           /00163401/ [Concomitant]
     Indication: CONSTIPATION
     Dosage: UNK
     Route: 048
     Dates: start: 200907
  33. ZYLORIC [Concomitant]
     Indication: URTICARIA
     Dosage: 300 MG, UNK
     Route: 048
     Dates: start: 200907

REACTIONS (4)
  - Pneumonia [Recovered/Resolved with Sequelae]
  - Lung disorder [Recovered/Resolved]
  - Systemic inflammatory response syndrome [Recovered/Resolved]
  - Bronchitis [Recovered/Resolved]
